FAERS Safety Report 4417578-4 (Version None)
Quarter: 2004Q2

REPORT INFORMATION
  Report Type: 
  Country: None (occurrence: None)
  Receive Date: 20040625
  Receipt Date: 20040327
  Transmission Date: 20050107
  Serious: No
  Sender: FDA-Public Use
  Company Number: 205955

PATIENT
  Age: 59 Year
  Sex: Male

DRUGS (5)
  1. AVASTIN [Suspect]
     Indication: COLORECTAL CANCER METASTATIC
     Dosage: INTRAVENOUS
     Route: 042
     Dates: start: 20040314
  2. AVASTIN [Suspect]
     Indication: COLORECTAL CANCER METASTATIC
     Dosage: INTRAVENOUS
     Route: 042
     Dates: start: 20040326
  3. MITOMYCIN [Concomitant]
  4. LISINOPRIL [Concomitant]
  5. TYLENOL [Concomitant]

REACTIONS (1)
  - RASH PRURITIC [None]
